FAERS Safety Report 6911840-9 (Version None)
Quarter: 2010Q3

REPORT INFORMATION
  Report Type: 
  Country: None (occurrence: None)
  Receive Date: 20100806
  Receipt Date: 20070802
  Transmission Date: 20110219
  Serious: No
  Sender: FDA-Public Use
  Company Number: US-PFIZER INC-2007065002

PATIENT
  Sex: Female

DRUGS (6)
  1. GLIPIZIDE [Suspect]
     Indication: DIABETES MELLITUS
  2. GLUCOTROL XL [Suspect]
     Indication: DIABETES MELLITUS
  3. GLIPIZIDE [Suspect]
     Indication: DIABETES MELLITUS
     Dates: start: 20070101, end: 20070101
  4. BEROCCA CALCIUM, MAGNESIUM [Concomitant]
  5. ACTOS [Concomitant]
     Dates: end: 20070101
  6. GLUCOPHAGE [Concomitant]

REACTIONS (2)
  - BLOOD GLUCOSE FLUCTUATION [None]
  - WEIGHT DECREASED [None]
